FAERS Safety Report 6289273-0 (Version None)
Quarter: 2009Q3

REPORT INFORMATION
  Report Type: 
  Country: None (occurrence: None)
  Receive Date: 20090730
  Receipt Date: 20070531
  Transmission Date: 20100115
  Serious: Yes (Other)
  Sender: FDA-Public Use
  Company Number: US-ASTRAZENECA-2006UW27910

PATIENT
  Age: 36 Year
  Sex: Female
  Weight: 104.3 kg

DRUGS (15)
  1. SEROQUEL [Suspect]
     Indication: DEPRESSION
     Dosage: 100-400 MG EVERYDAY
     Route: 048
     Dates: start: 20001227
  2. SEROQUEL [Suspect]
     Indication: HALLUCINATION, AUDITORY
     Dosage: 100-400 MG EVERYDAY
     Route: 048
     Dates: start: 20001227
  3. SEROQUEL [Suspect]
     Indication: SLEEP DISORDER
     Dosage: 100-400 MG EVERYDAY
     Route: 048
     Dates: start: 20001227
  4. SEROQUEL [Suspect]
     Route: 048
     Dates: start: 20000101, end: 20020101
  5. SEROQUEL [Suspect]
     Route: 048
     Dates: start: 20000101, end: 20020101
  6. SEROQUEL [Suspect]
     Route: 048
     Dates: start: 20000101, end: 20020101
  7. RISPERDAL [Suspect]
  8. HALDOL [Concomitant]
  9. ZYPREXA [Concomitant]
     Dosage: 15-20 MG PER DAY
     Dates: start: 20001227
  10. ELAVIL [Concomitant]
     Dosage: 75 MG IN MORNING, 225 MG AT NOON AND 75 BEFORE BED TIME
     Dates: start: 20000101
  11. NORTRIPTYLINE HCL [Concomitant]
     Dates: start: 20010312
  12. WELLBUTRIN [Concomitant]
     Dates: start: 20010312
  13. GABAPENTIN [Concomitant]
     Dates: start: 20021121
  14. MIRTAZAPINE [Concomitant]
     Dates: start: 20021121
  15. DYAZIDE [Concomitant]
     Dosage: ONE EVERY DAY
     Route: 048
     Dates: start: 20001013

REACTIONS (4)
  - DIABETES MELLITUS [None]
  - DIABETIC NEUROPATHY [None]
  - HYPERGLYCAEMIA [None]
  - TYPE 2 DIABETES MELLITUS [None]
